FAERS Safety Report 7584211-2 (Version None)
Quarter: 2011Q2

REPORT INFORMATION
  Report Type: 
  Country: None (occurrence: None)
  Receive Date: 20110531
  Receipt Date: 20110330
  Transmission Date: 20111010
  Serious: Yes (Other)
  Sender: FDA-Public Use
  Company Number: US-001845

PATIENT
  Sex: Male
  Weight: 104 kg

DRUGS (20)
  1. HYDROMORPHONE HCL [Concomitant]
  2. SITAGLIPTIN [Concomitant]
  3. LEXAPRO [Suspect]
     Indication: PRODUCT USED FOR UNKNOWN INDICATION
     Dosage: (ORAL)
     Route: 048
  4. CILOSTAZOL [Concomitant]
  5. COLECALCIFEROL [Concomitant]
  6. FENTANYL [Concomitant]
  7. WARFARIN SODIUM [Concomitant]
  8. METOPROLOL TARTRATE [Concomitant]
  9. LISINOPRIL [Concomitant]
  10. CALCIUM CITRATE [Concomitant]
  11. OMEPRAZOLE [Concomitant]
  12. ZOLPIDEM [Concomitant]
  13. TRAZODONE HCL [Suspect]
     Indication: PRODUCT USED FOR UNKNOWN INDICATION
     Dosage: (ORAL)
     Route: 048
  14. IMDUR [Concomitant]
  15. LIPITOR [Concomitant]
  16. LANTUS [Concomitant]
  17. LASIX [Concomitant]
  18. NOVOLIN R [Concomitant]
  19. TELAVANCIN HYDROCHLORIDE [Suspect]
     Indication: CELLULITIS
     Dosage: (10 MG/KG, TOTAL DOSE INTRAVENOUS (NOT OTHERWISE SPECIFIED))
     Route: 042
     Dates: start: 20110218, end: 20110220
  20. METOCLOPRAMIDE [Concomitant]

REACTIONS (1)
  - ELECTROCARDIOGRAM QT PROLONGED [None]
